FAERS Safety Report 8916306 (Version 2)
Quarter: 2013Q1

REPORT INFORMATION
  Report Type: Report from Study
  Country: US (occurrence: US)
  Receive Date: 20121120
  Receipt Date: 20130320
  Transmission Date: 20140127
  Serious: Yes (Hospitalization, Other)
  Sender: FDA-Public Use
  Company Number: US-BAYER-2012-118525

PATIENT
  Age: 55 Year
  Sex: Male

DRUGS (1)
  1. NEXAVAR [Suspect]
     Indication: HEPATIC CANCER
     Dosage: 400 MG AM, 200 MG PM
     Route: 048
     Dates: start: 201202, end: 201210

REACTIONS (2)
  - Transient ischaemic attack [Not Recovered/Not Resolved]
  - Abasia [Not Recovered/Not Resolved]
